APPROVED DRUG PRODUCT: TETRACYCLINE HYDROCHLORIDE
Active Ingredient: TETRACYCLINE HYDROCHLORIDE
Strength: 500MG
Dosage Form/Route: CAPSULE;ORAL
Application: A210662 | Product #002 | TE Code: AB
Applicant: BRECKENRIDGE PHARMACEUTICAL INC
Approved: Nov 7, 2018 | RLD: No | RS: No | Type: RX